FAERS Safety Report 22169087 (Version 3)
Quarter: 2023Q2

REPORT INFORMATION
  Report Type: Spontaneous
  Country: US (occurrence: US)
  Receive Date: 20230404
  Receipt Date: 20230405
  Transmission Date: 20230722
  Serious: Yes (Other)
  Sender: FDA-Public Use
  Company Number: US-SANOFI-01554050

PATIENT
  Age: 74 Year
  Sex: Male

DRUGS (1)
  1. DUPIXENT [Suspect]
     Active Substance: DUPILUMAB
     Indication: Eczema
     Dosage: 300 MG

REACTIONS (7)
  - Cutaneous T-cell lymphoma [Unknown]
  - Disease progression [Unknown]
  - Fungal skin infection [Recovering/Resolving]
  - Erythema [Recovering/Resolving]
  - Lymphocytic infiltration [Not Recovered/Not Resolved]
  - Eczema [Unknown]
  - Therapeutic response delayed [Unknown]

NARRATIVE: CASE EVENT DATE: 20230221
